FAERS Safety Report 12345474 (Version 5)
Quarter: 2016Q2

REPORT INFORMATION
  Report Type: Report from Study
  Country: DE (occurrence: DE)
  Receive Date: 20160508
  Receipt Date: 20160613
  Transmission Date: 20160815
  Serious: Yes (Hospitalization)
  Sender: FDA-Public Use
  Company Number: DE-UCBSA-2016016298

PATIENT
  Age: 34 Year
  Sex: Female
  Weight: 122 kg

DRUGS (4)
  1. CLINDAMYCIN [Concomitant]
     Active Substance: CLINDAMYCIN\CLINDAMYCIN PHOSPHATE
     Indication: PRODUCT USED FOR UNKNOWN INDICATION
     Dosage: 600 MG, 3X/DAY (TID)
     Route: 042
  2. CERTOLIZUMAB PEGOL [Suspect]
     Active Substance: CERTOLIZUMAB PEGOL
     Indication: PSORIATIC ARTHROPATHY
  3. METEX [Concomitant]
     Active Substance: METFORMIN HYDROCHLORIDE
     Indication: RHEUMATOID ARTHRITIS
     Dosage: 17.5 MG, WEEKLY (QW)
     Route: 058
     Dates: start: 20150630
  4. CERTOLIZUMAB PEGOL [Suspect]
     Active Substance: CERTOLIZUMAB PEGOL
     Indication: RHEUMATOID ARTHRITIS
     Dosage: 200 MG, EV 2 WEEKS(QOW)
     Route: 058
     Dates: start: 20160311, end: 20160422

REACTIONS (1)
  - Tonsillitis [Recovering/Resolving]

NARRATIVE: CASE EVENT DATE: 20160425
